FAERS Safety Report 21998917 (Version 1)
Quarter: 2023Q1

REPORT INFORMATION
  Report Type: Spontaneous
  Country: AT (occurrence: AT)
  Receive Date: 20230216
  Receipt Date: 20230216
  Transmission Date: 20230418
  Serious: Yes (Other)
  Sender: FDA-Public Use
  Company Number: AT-MYLANLABS-2022M1140795

PATIENT
  Age: 60 Year
  Sex: Male

DRUGS (12)
  1. ADALIMUMAB [Suspect]
     Active Substance: ADALIMUMAB
     Indication: Psoriatic arthropathy
     Dosage: Q2;
     Route: 058
     Dates: start: 202102, end: 2021
  2. ADALIMUMAB [Suspect]
     Active Substance: ADALIMUMAB
     Route: 058
     Dates: start: 202103, end: 202206
  3. EZETIMIBE\ROSUVASTATIN CALCIUM [Suspect]
     Active Substance: EZETIMIBE\ROSUVASTATIN CALCIUM
     Indication: Hyperlipidaemia
     Dosage: STRENGTH: 20 MG PLUS 10MG;
     Route: 065
     Dates: start: 2021, end: 202203
  4. EZETIMIBE\ROSUVASTATIN CALCIUM [Suspect]
     Active Substance: EZETIMIBE\ROSUVASTATIN CALCIUM
     Dosage: STRENGTH: 20 MG PLUS 10MG;
     Route: 065
     Dates: start: 2022, end: 2022
  5. ATORVASTATIN [Suspect]
     Active Substance: ATORVASTATIN
     Indication: Hyperlipidaemia
     Dosage: STARTED POST OPERATION -BYPASS SURGERY; Q2;
     Route: 065
     Dates: start: 2020, end: 2021
  6. EZETIMIBE [Suspect]
     Active Substance: EZETIMIBE
     Indication: Hyperlipidaemia
     Dosage: AS SINGLE TABLETS; IN THE EVENINGS;
     Route: 048
     Dates: start: 202101, end: 202203
  7. EZETIMIBE [Suspect]
     Active Substance: EZETIMIBE
     Dosage: IN EVENING;
     Route: 048
     Dates: start: 202203, end: 2022
  8. EZETIMIBE [Suspect]
     Active Substance: EZETIMIBE
     Dosage: IN THE EVENINGS;
     Route: 048
     Dates: start: 2022
  9. ROSUVASTATIN [Suspect]
     Active Substance: ROSUVASTATIN
     Indication: Hyperlipidaemia
     Route: 048
     Dates: end: 202203
  10. ROSUVASTATIN [Suspect]
     Active Substance: ROSUVASTATIN
     Dosage: AGAIN IN THE MORNINGS;
     Route: 048
     Dates: start: 202203, end: 202208
  11. ROSUVASTATIN [Suspect]
     Active Substance: ROSUVASTATIN
     Dosage: AM;
     Route: 048
     Dates: start: 202208
  12. ROSUVASTATIN [Suspect]
     Active Substance: ROSUVASTATIN
     Dosage: AM;
     Route: 065

REACTIONS (2)
  - Psoriatic arthropathy [Recovered/Resolved]
  - Drug ineffective [Unknown]

NARRATIVE: CASE EVENT DATE: 20210101
